FAERS Safety Report 12158470 (Version 2)
Quarter: 2017Q3

REPORT INFORMATION
  Report Type: Spontaneous
  Country: US (occurrence: US)
  Receive Date: 20160308
  Receipt Date: 20170725
  Transmission Date: 20171127
  Serious: No
  Sender: FDA-Public Use
  Company Number: US-JNJFOC-20150211499

PATIENT
  Sex: Female

DRUGS (8)
  1. IMBRUVICA [Suspect]
     Active Substance: IBRUTINIB
     Indication: CHRONIC LYMPHOCYTIC LEUKAEMIA
     Route: 048
     Dates: start: 20140410
  2. METOPROLOL. [Concomitant]
     Active Substance: METOPROLOL
     Dosage: O.5 TAB
  3. SERTRALINE [Concomitant]
     Active Substance: SERTRALINE HYDROCHLORIDE
  4. FOLIC ACID. [Concomitant]
     Active Substance: FOLIC ACID
  5. ACYCLOVIR. [Concomitant]
     Active Substance: ACYCLOVIR
     Indication: PROPHYLAXIS
     Dosage: 400 BID
  6. LITHOBID [Concomitant]
     Active Substance: LITHIUM CARBONATE
     Dosage: ONE TAB AM AND TWO IN THE PM
  7. BUSPIRONE [Concomitant]
     Active Substance: BUSPIRONE HYDROCHLORIDE
  8. LEVOTHYROXINE. [Concomitant]
     Active Substance: LEVOTHYROXINE

REACTIONS (5)
  - Feeding disorder [Unknown]
  - Oral pain [Not Recovered/Not Resolved]
  - Diarrhoea [Unknown]
  - Tooth discolouration [Unknown]
  - Tooth disorder [Unknown]
